FAERS Safety Report 17728214 (Version 21)
Quarter: 2022Q4

REPORT INFORMATION
  Report Type: Report from Study
  Country: US (occurrence: US)
  Receive Date: 20200430
  Receipt Date: 20221222
  Transmission Date: 20230113
  Serious: Yes (Hospitalization, Other)
  Sender: FDA-Public Use
  Company Number: US-NOVARTISPH-NVSC2020US107963

PATIENT
  Age: 36 Year
  Sex: Female
  Weight: 123.83 kg

DRUGS (13)
  1. TREPROSTINIL [Suspect]
     Active Substance: TREPROSTINIL
     Indication: Pulmonary arterial hypertension
     Dosage: 78 NG/KG/MIN, CONT (STRENGTH: 5 MG/ML)
     Route: 042
     Dates: start: 20200407
  2. TREPROSTINIL [Suspect]
     Active Substance: TREPROSTINIL
     Dosage: 78 NG/KG/MIN, CONT (STRENGTH:2.5 MG/ML)
     Route: 058
  3. TREPROSTINIL [Suspect]
     Active Substance: TREPROSTINIL
     Dosage: 78 NG/KG/MIN, CONT (STRENGTH:1 MG/ML)
     Route: 042
  4. TREPROSTINIL [Suspect]
     Active Substance: TREPROSTINIL
     Dosage: 80 NG/KG/MIN, CONT (STRENGTH - 5 MG/ML)
     Route: 042
     Dates: start: 20200807
  5. TREPROSTINIL [Suspect]
     Active Substance: TREPROSTINIL
     Dosage: 80 NG/KG/MIN, CONT (STRENGTH - 1 MG/ML)
     Route: 042
  6. TREPROSTINIL [Suspect]
     Active Substance: TREPROSTINIL
     Dosage: 80 NG/KG/MIN, CONT
     Route: 042
  7. TREPROSTINIL [Suspect]
     Active Substance: TREPROSTINIL
     Dosage: 80 NG/KG/MIN, CONT
     Route: 042
  8. TREPROSTINIL [Suspect]
     Active Substance: TREPROSTINIL
     Dosage: 82 NG/KG/MIN, CONT
     Route: 042
     Dates: start: 20200807
  9. TREPROSTINIL [Suspect]
     Active Substance: TREPROSTINIL
     Dosage: 82 NG/KG/MIN, CONT (STRENGTH:1 MG/ML)
     Route: 042
  10. TREPROSTINIL [Suspect]
     Active Substance: TREPROSTINIL
     Dosage: 82 NG/KG/ MI N , CONT
     Route: 042
  11. LEFLUNOMIDE [Suspect]
     Active Substance: LEFLUNOMIDE
     Indication: Product used for unknown indication
     Dosage: 10 MG, QD
     Route: 065
  12. LEFLUNOMIDE [Suspect]
     Active Substance: LEFLUNOMIDE
     Dosage: 10 MG, QD (STARTED AGAIN)
     Route: 065
  13. TADALAFIL [Concomitant]
     Active Substance: TADALAFIL
     Indication: Product used for unknown indication
     Dosage: UNK
     Route: 065

REACTIONS (21)
  - Pneumonia viral [Unknown]
  - Cough [Unknown]
  - Pyrexia [Unknown]
  - Vascular device infection [Unknown]
  - Crohn^s disease [Unknown]
  - Thrombosis [Unknown]
  - Psoriatic arthropathy [Unknown]
  - Rheumatoid arthritis [Unknown]
  - Anxiety [Unknown]
  - Depressed mood [Unknown]
  - Gastrointestinal disorder [Unknown]
  - Arthritis [Unknown]
  - Pain [Unknown]
  - Seasonal allergy [Not Recovered/Not Resolved]
  - Sensitivity to weather change [Unknown]
  - Gait disturbance [Unknown]
  - Nasopharyngitis [Unknown]
  - Malaise [Unknown]
  - Dyspnoea [Unknown]
  - Abdominal pain upper [Unknown]
  - Diarrhoea [Unknown]

NARRATIVE: CASE EVENT DATE: 20200417
